FAERS Safety Report 4837969-7 (Version None)
Quarter: 2005Q4

REPORT INFORMATION
  Report Type: 
  Country: None (occurrence: None)
  Receive Date: 20051128
  Receipt Date: 20051110
  Transmission Date: 20060501
  Serious: Yes (Hospitalization)
  Sender: FDA-Public Use
  Company Number: US-ROCHE-424565

PATIENT
  Age: 68 Year
  Sex: Female
  Weight: 80.6 kg

DRUGS (31)
  1. MYCOPHENOLATE MOFETIL [Suspect]
     Route: 048
     Dates: start: 20040813, end: 20050209
  2. MYCOPHENOLATE MOFETIL [Suspect]
     Route: 048
     Dates: start: 20050209, end: 20050711
  3. MYCOPHENOLATE MOFETIL [Suspect]
     Route: 048
     Dates: start: 20050711, end: 20050711
  4. MYCOPHENOLATE MOFETIL [Suspect]
     Route: 048
     Dates: start: 20050712, end: 20050712
  5. MYCOPHENOLATE MOFETIL [Suspect]
     Route: 048
     Dates: start: 20050713, end: 20050717
  6. MYCOPHENOLATE MOFETIL [Suspect]
     Route: 048
  7. MEDROL [Suspect]
     Route: 048
     Dates: start: 20040813, end: 20050628
  8. MEDROL [Suspect]
     Route: 048
     Dates: start: 20050628, end: 20050701
  9. MEDROL [Suspect]
     Route: 048
     Dates: start: 20050701
  10. TACROLIMUS [Suspect]
     Route: 048
     Dates: start: 20040815, end: 20050425
  11. TACROLIMUS [Suspect]
     Route: 048
     Dates: start: 20050425, end: 20050711
  12. TACROLIMUS [Suspect]
     Route: 048
     Dates: start: 20050711, end: 20050711
  13. TACROLIMUS [Suspect]
     Route: 048
     Dates: start: 20050712, end: 20050712
  14. TACROLIMUS [Suspect]
     Route: 048
     Dates: start: 20050714
  15. NEPHROCAPS [Concomitant]
     Route: 048
     Dates: start: 20050624
  16. SERTRALINE HCL [Concomitant]
     Dates: start: 20050624, end: 20050710
  17. ASPIRIN [Concomitant]
     Route: 048
     Dates: start: 20040816
  18. ZOCOR [Concomitant]
     Route: 048
     Dates: start: 20040816
  19. ARANESP [Concomitant]
     Dosage: DOSE REPORTED AS VARIABLE. 62 WEEKS TREATMENT.
     Dates: start: 20050404
  20. AVANDIA [Concomitant]
     Dates: start: 20050708, end: 20050710
  21. XANAX [Concomitant]
     Dates: start: 20041228, end: 20050710
  22. NOVOLOG [Concomitant]
     Dosage: TOTAL DAILY DOSE REPORTED AS 55.
     Dates: start: 20040902, end: 20050710
  23. LANTUS [Concomitant]
     Dates: start: 20050708
  24. LISINOPRIL [Concomitant]
     Dates: start: 20050303, end: 20050713
  25. FUROSEMIDE [Concomitant]
     Dates: start: 20040830, end: 20050710
  26. ZETIA [Concomitant]
     Dates: start: 20050208, end: 20050710
  27. BACTRIM DS [Concomitant]
     Dates: start: 20040830, end: 20050713
  28. DARVON [Concomitant]
     Dosage: AS REQUIRED.
     Dates: start: 20040817, end: 20050710
  29. PROTONIX [Concomitant]
     Dates: start: 20050624, end: 20050711
  30. IMDUR [Concomitant]
     Route: 048
     Dates: start: 20040816
  31. METOPROLOL [Concomitant]
     Route: 048
     Dates: start: 20040817

REACTIONS (6)
  - ANAEMIA [None]
  - ASTHENIA [None]
  - BLOOD CREATININE INCREASED [None]
  - DEHYDRATION [None]
  - HYPERGLYCAEMIA [None]
  - THROMBOCYTOPENIA [None]
